FAERS Safety Report 6935670-7 (Version None)
Quarter: 2010Q3

REPORT INFORMATION
  Report Type: 
  Country: None (occurrence: None)
  Receive Date: 20100823
  Receipt Date: 20100812
  Transmission Date: 20110219
  Serious: Yes (Hospitalization)
  Sender: FDA-Public Use
  Company Number: US-JNJFOC-20100805549

PATIENT
  Sex: Female
  Weight: 63.5 kg

DRUGS (7)
  1. FENTANYL CITRATE [Suspect]
     Indication: PAIN
     Route: 062
  2. FENTANYL-100 [Suspect]
     Indication: PAIN
     Route: 062
  3. FENTANYL CITRATE [Suspect]
     Route: 062
  4. CRESTOR [Concomitant]
     Indication: PRODUCT USED FOR UNKNOWN INDICATION
     Route: 048
  5. UNKNOWN MEDICATION [Concomitant]
     Indication: BLOOD CHOLESTEROL
     Route: 048
  6. XANAX [Concomitant]
     Indication: ANXIETY
     Route: 048
  7. SOMA [Concomitant]
     Indication: MUSCLE RELAXANT THERAPY
     Dosage: TID AS NEEDED
     Route: 048

REACTIONS (17)
  - ABNORMAL LOSS OF WEIGHT [None]
  - APPLICATION SITE BURN [None]
  - APPLICATION SITE RASH [None]
  - APPLICATION SITE ULCER [None]
  - APPLICATION SITE VESICLES [None]
  - CHEST DISCOMFORT [None]
  - DEVICE LEAKAGE [None]
  - DIZZINESS [None]
  - DRUG DOSE OMISSION [None]
  - GASTRIC DISORDER [None]
  - HOSPITALISATION [None]
  - LOSS OF CONSCIOUSNESS [None]
  - PAIN [None]
  - PNEUMONIA [None]
  - PRODUCT QUALITY ISSUE [None]
  - VOMITING [None]
  - WRONG TECHNIQUE IN DRUG USAGE PROCESS [None]
